FAERS Safety Report 7255881-3 (Version None)
Quarter: 2011Q1

REPORT INFORMATION
  Report Type: 
  Country: None (occurrence: None)
  Receive Date: 20110129
  Receipt Date: 20100507
  Transmission Date: 20110831
  Serious: No
  Sender: FDA-Public Use
  Company Number: US-ABBOTT-10P-163-0643565-00

PATIENT
  Sex: Male

DRUGS (4)
  1. HUMIRA [Suspect]
     Indication: CROHN'S DISEASE
     Dates: start: 20100401, end: 20100401
  2. HUMIRA [Suspect]
     Route: 050
     Dates: start: 20100413, end: 20100413
  3. HUMIRA [Suspect]
     Dates: start: 20100501
  4. PENTASA [Concomitant]
     Indication: CROHN'S DISEASE

REACTIONS (1)
  - FATIGUE [None]
